FAERS Safety Report 8258694-9 (Version None)
Quarter: 2012Q2

REPORT INFORMATION
  Report Type: 
  Country: None (occurrence: None)
  Receive Date: 20120404
  Receipt Date: 20120327
  Transmission Date: 20120825
  Serious: Yes (Death, Hospitalization)
  Sender: FDA-Public Use
  Company Number: FR-SANOFI-AVENTIS-2012SA020948

PATIENT
  Age: 77 Year
  Sex: Female

DRUGS (8)
  1. PREVISCAN [Concomitant]
     Route: 048
     Dates: start: 20110402, end: 20120223
  2. SPIRONOLACTONE [Concomitant]
     Route: 048
     Dates: end: 20120223
  3. NEXIUM [Concomitant]
     Route: 048
     Dates: start: 20110402, end: 20120223
  4. EFFEXOR [Concomitant]
     Route: 048
     Dates: start: 20110402, end: 20120223
  5. FLUTICASONE PROPIONATE/SALMETEROL [Concomitant]
     Route: 048
  6. VERAPAMIL [Suspect]
     Route: 048
     Dates: start: 20110402, end: 20120223
  7. BRONCHODUAL [Concomitant]
     Route: 048
  8. MULTAQ [Suspect]
     Dosage: STRENGTH: 400 MG
     Route: 048
     Dates: start: 20110402, end: 20120223

REACTIONS (1)
  - ATRIOVENTRICULAR BLOCK COMPLETE [None]
